FAERS Safety Report 5643713-6 (Version None)
Quarter: 2008Q1

REPORT INFORMATION
  Report Type: 
  Country: None (occurrence: None)
  Receive Date: 20080131
  Receipt Date: 20071225
  Transmission Date: 20080703
  Serious: Yes (Other)
  Sender: FDA-Public Use
  Company Number: 163-21880-07121367

PATIENT
  Age: 15 Year
  Sex: Female
  Weight: 59.5 kg

DRUGS (5)
  1. REVLIMID [Suspect]
     Indication: CENTRAL NERVOUS SYSTEM NEOPLASM
     Dosage: 116 MG/M2, QD FOR 21 DAYS. ORAL
     Route: 048
     Dates: start: 20070730, end: 20070919
  2. GEODON [Concomitant]
  3. LOESTRIN (ANOVLAR) [Concomitant]
  4. PRILOSEC [Concomitant]
  5. ZYRTEC [Concomitant]

REACTIONS (1)
  - NEUTROPENIA [None]
